FAERS Safety Report 15555578 (Version 4)
Quarter: 2020Q3

REPORT INFORMATION
  Report Type: Spontaneous
  Country: DZ (occurrence: DZ)
  Receive Date: 20181026
  Receipt Date: 20200930
  Transmission Date: 20201102
  Serious: Yes (Death, Other)
  Sender: FDA-Public Use
  Company Number: DZ-BIOVITRUM-2018DZ1241

PATIENT
  Age: 16 Year
  Sex: Female

DRUGS (2)
  1. ORFADIN [Suspect]
     Active Substance: NITISINONE
     Indication: TYROSINAEMIA
     Dates: start: 2007
  2. PHOSPHORUS [Concomitant]
     Active Substance: PHOSPHORUS
     Dosage: 40 DROPS PER DAY

REACTIONS (13)
  - Hepatic cirrhosis [Unknown]
  - Axonal neuropathy [Unknown]
  - Enamel anomaly [Unknown]
  - Tooth discolouration [Unknown]
  - Pancytopenia [Unknown]
  - Generalised tonic-clonic seizure [Unknown]
  - Delayed puberty [Unknown]
  - Rash [Unknown]
  - Cardiac disorder [Fatal]
  - Onychophagia [Unknown]
  - Alpha 1 foetoprotein increased [Unknown]
  - Liver disorder [Fatal]
  - Condition aggravated [Unknown]
